FAERS Safety Report 21555265 (Version 1)
Quarter: 2022Q4

REPORT INFORMATION
  Report Type: Spontaneous
  Country: US (occurrence: None)
  Receive Date: 20221103
  Receipt Date: 20221103
  Transmission Date: 20230112
  Serious: Yes (Hospitalization, Other)
  Sender: FDA-Public Use
  Company Number: None

PATIENT
  Age: 53 Year
  Sex: Female
  Weight: 40.5 kg

DRUGS (13)
  1. AMITRIPTYLINE [Suspect]
     Active Substance: AMITRIPTYLINE
     Indication: Pain
     Dosage: FREQUENCY : AT BEDTIME;?
     Route: 048
     Dates: start: 20220625
  2. AMITRIPTYLINE [Suspect]
     Active Substance: AMITRIPTYLINE
     Indication: Anxiety
  3. AMITRIPTYLINE [Concomitant]
     Active Substance: AMITRIPTYLINE
  4. olmesaten [Concomitant]
  5. METOPROLOL [Concomitant]
     Active Substance: METOPROLOL
  6. AMLODIPINE [Concomitant]
     Active Substance: AMLODIPINE BESYLATE
  7. VITAMIN B12 [Concomitant]
     Active Substance: CYANOCOBALAMIN
  8. TAZORAC [Concomitant]
     Active Substance: TAZAROTENE
  9. NASONEX [Concomitant]
     Active Substance: MOMETASONE FUROATE
  10. XANAX [Concomitant]
     Active Substance: ALPRAZOLAM
  11. FOLATE SODIUM [Concomitant]
     Active Substance: FOLATE SODIUM
  12. VITAMIN B COMPLEX [Concomitant]
     Active Substance: CYANOCOBALAMIN\DEXPANTHENOL\NIACINAMIDE\PYRIDOXINE HYDROCHLORIDE\RIBOFLAVIN 5^-PHOSPHATE SODIUM\THIA
  13. women^s 50+ One a day [Concomitant]

REACTIONS (3)
  - Tonic clonic movements [None]
  - Withdrawal syndrome [None]
  - Product quality issue [None]

NARRATIVE: CASE EVENT DATE: 20220708
